FAERS Safety Report 5916229-7 (Version None)
Quarter: 2008Q4

REPORT INFORMATION
  Report Type: 
  Country: None (occurrence: None)
  Receive Date: 20081013
  Receipt Date: 20081001
  Transmission Date: 20090506
  Serious: Yes (Hospitalization)
  Sender: FDA-Public Use
  Company Number: US-WYE-H06198508

PATIENT
  Sex: Female

DRUGS (1)
  1. PRISTIQ [Suspect]
     Indication: DEPRESSION
     Dosage: 50 MG FREQUENCY UNSPECIFIED
     Route: 048

REACTIONS (2)
  - RASH [None]
  - SKIN IRRITATION [None]
